FAERS Safety Report 11485834 (Version 1)
Quarter: 2015Q3

REPORT INFORMATION
  Report Type: Report from Study
  Country: GB (occurrence: GB)
  Receive Date: 20150910
  Receipt Date: 20150910
  Transmission Date: 20151125
  Serious: Yes (Other)
  Sender: FDA-Public Use
  Company Number: PHFR2015GB006601

PATIENT
  Sex: Female

DRUGS (1)
  1. GILENYA [Suspect]
     Active Substance: FINGOLIMOD HYDROCHLORIDE
     Indication: MULTIPLE SCLEROSIS
     Dosage: 0.5 MG, UNK
     Route: 065
     Dates: start: 20131107

REACTIONS (13)
  - Thyroid disorder [Unknown]
  - Headache [Unknown]
  - Neutrophil count decreased [Unknown]
  - General physical health deterioration [Unknown]
  - Menstrual disorder [Unknown]
  - Weight increased [Unknown]
  - Dysphagia [Unknown]
  - Hair disorder [Unknown]
  - Chest discomfort [Unknown]
  - Fatigue [Unknown]
  - Lymphocyte count decreased [Unknown]
  - Anxiety [Unknown]
  - Dyspnoea [Unknown]
